FAERS Safety Report 10682264 (Version 2)
Quarter: 2015Q1

REPORT INFORMATION
  Report Type: Spontaneous
  Country: US (occurrence: US)
  Receive Date: 20141230
  Receipt Date: 20150106
  Transmission Date: 20150720
  Serious: Yes (Other)
  Sender: FDA-Public Use
  Company Number: CHPA2014US016947

PATIENT
  Age: 66 Year
  Sex: Female

DRUGS (6)
  1. GAS-X [Suspect]
     Active Substance: DIMETHICONE
     Indication: PREMENSTRUAL PAIN
  2. GAS-X [Suspect]
     Active Substance: DIMETHICONE
     Indication: DYSGEUSIA
     Dosage: 2 DF, AFTER EVERY MEAL
     Route: 048
     Dates: start: 1980
  3. GAS-X [Suspect]
     Active Substance: DIMETHICONE
     Indication: DENTAL DISORDER PROPHYLAXIS
  4. GAS-X [Suspect]
     Active Substance: DIMETHICONE
     Indication: FLATULENCE
  5. GAS-X [Suspect]
     Active Substance: DIMETHICONE
     Indication: GASTROOESOPHAGEAL REFLUX DISEASE
  6. IMODIUM [Concomitant]
     Active Substance: LOPERAMIDE HYDROCHLORIDE
     Indication: IRRITABLE BOWEL SYNDROME
     Dosage: UNK
     Route: 065

REACTIONS (7)
  - Hiatus hernia [Unknown]
  - Abdominal pain upper [Unknown]
  - Gastrointestinal infection [Unknown]
  - Off label use [Unknown]
  - Fibromyalgia [Not Recovered/Not Resolved]
  - Type 2 diabetes mellitus [Not Recovered/Not Resolved]
  - Abdominal discomfort [Unknown]

NARRATIVE: CASE EVENT DATE: 1996
